FAERS Safety Report 6597638-2 (Version None)
Quarter: 2010Q1

REPORT INFORMATION
  Report Type: 
  Country: None (occurrence: None)
  Receive Date: 20100219
  Receipt Date: 20100219
  Transmission Date: 20100710
  Serious: Yes (Life-Threatening)
  Sender: FDA-Public Use
  Company Number: None

PATIENT
  Age: 32 Year
  Sex: Female

DRUGS (1)
  1. PROPOFOL [Suspect]

REACTIONS (2)
  - ANAPHYLACTIC REACTION [None]
  - ANGIOEDEMA [None]
